FAERS Safety Report 8195768-5 (Version None)
Quarter: 2012Q1

REPORT INFORMATION
  Report Type: 
  Country: None (occurrence: None)
  Receive Date: 20120308
  Receipt Date: 20120305
  Transmission Date: 20120608
  Serious: Yes (Hospitalization)
  Sender: FDA-Public Use
  Company Number: US-GILEAD-2012-0049637

PATIENT
  Sex: Female

DRUGS (3)
  1. LETAIRIS [Suspect]
     Indication: PULMONARY HYPERTENSION
     Dosage: 10 MG, UNK
     Route: 048
     Dates: start: 20110104
  2. LETAIRIS [Suspect]
     Indication: LANGERHANS' CELL HISTIOCYTOSIS
  3. REMODULIN [Concomitant]

REACTIONS (2)
  - PAIN [None]
  - ASTHENIA [None]
